FAERS Safety Report 8146944-9 (Version None)
Quarter: 2012Q1

REPORT INFORMATION
  Report Type: 
  Country: None (occurrence: None)
  Receive Date: 20120217
  Receipt Date: 20120208
  Transmission Date: 20120608
  Serious: Yes (Life-Threatening, Hospitalization, Other)
  Sender: FDA-Public Use
  Company Number: US-RB-036833-12

PATIENT
  Sex: Female

DRUGS (1)
  1. SUBOXONE [Suspect]
     Indication: PAIN MANAGEMENT
     Route: 060
     Dates: start: 20111118, end: 20111118

REACTIONS (5)
  - MYOCARDIAL INFARCTION [None]
  - PAIN [None]
  - DRUG WITHDRAWAL SYNDROME [None]
  - OFF LABEL USE [None]
  - WRONG TECHNIQUE IN DRUG USAGE PROCESS [None]
